FAERS Safety Report 9365829 (Version 5)
Quarter: 2015Q2

REPORT INFORMATION
  Report Type: Spontaneous
  Country: ES (occurrence: ES)
  Receive Date: 20130625
  Receipt Date: 20150505
  Transmission Date: 20150821
  Serious: Yes (Hospitalization, Other)
  Sender: FDA-Public Use
  Company Number: PHHY2013ES062505

PATIENT
  Age: 47 Year
  Sex: Male

DRUGS (4)
  1. LORAZEPAM. [Suspect]
     Active Substance: LORAZEPAM
     Indication: SCHIZOPHRENIA, PARANOID TYPE
     Dosage: 15 MG, QD
     Route: 065
  2. CLOZAPINE. [Suspect]
     Active Substance: CLOZAPINE
     Indication: SCHIZOPHRENIA, PARANOID TYPE
     Dosage: 600 MG, QD
     Route: 065
  3. RISPERIDONE. [Suspect]
     Active Substance: RISPERIDONE
     Indication: SCHIZOPHRENIA, PARANOID TYPE
     Dosage: 8 MG, QD
     Route: 065
  4. BIPERIDEN [Suspect]
     Active Substance: BIPERIDEN
     Indication: SCHIZOPHRENIA, PARANOID TYPE
     Dosage: 4 MG, QD
     Route: 065

REACTIONS (15)
  - Pyrexia [Recovered/Resolved]
  - Erythema [Recovered/Resolved]
  - Swelling [Recovered/Resolved]
  - Rectal haemorrhage [Recovered/Resolved]
  - Localised oedema [Recovered/Resolved]
  - Cognitive disorder [Unknown]
  - Aggression [Unknown]
  - Fibrosis [Recovered/Resolved]
  - Abdominal tenderness [Recovered/Resolved]
  - Vomiting [Recovered/Resolved]
  - Suicide attempt [Unknown]
  - Anal ulcer [Recovered/Resolved]
  - Colitis ischaemic [Recovered/Resolved]
  - Diarrhoea [Recovered/Resolved]
  - Leukocytosis [Recovered/Resolved]
